FAERS Safety Report 8758422 (Version 3)
Quarter: 2013Q3

REPORT INFORMATION
  Report Type: Report from Study
  Country: US (occurrence: US)
  Receive Date: 20120824
  Receipt Date: 20130822
  Transmission Date: 20140515
  Serious: Yes (Hospitalization)
  Sender: FDA-Public Use
  Company Number: US-ELI_LILLY_AND_COMPANY-US201208005811

PATIENT
  Sex: Male

DRUGS (8)
  1. TERIPARATIDE [Suspect]
     Indication: OSTEOPOROSIS
     Dosage: 20 UG, QD
     Dates: start: 20120723
  2. TERIPARATIDE [Suspect]
     Dosage: 20 UG, QD
     Dates: end: 201208
  3. TERIPARATIDE [Suspect]
     Dosage: UNK, QD
     Dates: start: 20120701
  4. SAMSCA [Concomitant]
     Dosage: UNK
  5. ZYRTEC [Concomitant]
     Dosage: UNK
  6. XANAX [Concomitant]
     Dosage: UNK
  7. PRILOSEC                           /00661201/ [Concomitant]
     Dosage: UNK
  8. MULTIVITAMIN                       /00831701/ [Concomitant]
     Dosage: UNK

REACTIONS (3)
  - Clostridium difficile infection [Recovering/Resolving]
  - Pneumonia [Recovered/Resolved]
  - Malaise [Unknown]
